FAERS Safety Report 8609085-X (Version None)
Quarter: 2012Q3

REPORT INFORMATION
  Report Type: 
  Country: None (occurrence: None)
  Receive Date: 20120808
  Receipt Date: 20120723
  Transmission Date: 20120928
  Serious: Yes (Hospitalization, Congenital Anomaly, Other)
  Sender: FDA-Public Use
  Company Number: 2012MA008203

PATIENT
  Sex: Female
  Weight: 2.5 kg

DRUGS (1)
  1. BETAMETHASONE VALERATE 0.1% CREAM [Suspect]
     Indication: MATERNAL THERAPY TO ENHANCE FOETAL LUNG MATURITY
     Dosage: 12 MG;QD; TRPL
     Route: 064

REACTIONS (3)
  - MATERNAL DRUGS AFFECTING FOETUS [None]
  - HYPERTROPHIC CARDIOMYOPATHY [None]
  - CARDIOMYOPATHY NEONATAL [None]
